FAERS Safety Report 11378751 (Version 1)
Quarter: 2015Q3

REPORT INFORMATION
  Report Type: Spontaneous
  Country: US (occurrence: None)
  Receive Date: 20150812
  Receipt Date: 20150812
  Transmission Date: 20151125
  Serious: Yes (Other)
  Sender: FDA-Public Use
  Company Number: DEP_03309_2015

PATIENT
  Age: 40 Year
  Sex: Female

DRUGS (9)
  1. SIMVASTATIN. [Concomitant]
     Active Substance: SIMVASTATIN
  2. LOPERAMIDE [Concomitant]
     Active Substance: LOPERAMIDE
  3. TOPIRAMATE. [Concomitant]
     Active Substance: TOPIRAMATE
  4. ASPIRIN. [Concomitant]
     Active Substance: ASPIRIN
  5. NUCYNTA ER [Suspect]
     Active Substance: TAPENTADOL HYDROCHLORIDE
     Indication: MIGRAINE
     Dosage: 1X/12 HOURS
     Route: 048
     Dates: start: 20150731
  6. NUCYNTA ER [Suspect]
     Active Substance: TAPENTADOL HYDROCHLORIDE
     Indication: PAIN
     Dosage: 1X/12 HOURS
     Route: 048
     Dates: start: 20150731
  7. BUPROPION. [Concomitant]
     Active Substance: BUPROPION
  8. OXCARBAZEPINE. [Concomitant]
     Active Substance: OXCARBAZEPINE
  9. MAGNESIUM HYDROXIDE W/OMEPRAZOLE/SODIUM BICAR [Concomitant]

REACTIONS (2)
  - Amnesia [None]
  - Disorganised speech [None]

NARRATIVE: CASE EVENT DATE: 20150802
